FAERS Safety Report 24328672 (Version 1)
Quarter: 2024Q3

REPORT INFORMATION
  Report Type: Spontaneous
  Country: US (occurrence: None)
  Receive Date: 20240917
  Receipt Date: 20240917
  Transmission Date: 20241017
  Serious: Yes (Hospitalization, Other)
  Sender: Public
  Company Number: None

PATIENT
  Age: 24 Year
  Sex: Female
  Weight: 85.5 kg

DRUGS (4)
  1. AJOVY [Suspect]
     Active Substance: FREMANEZUMAB-VFRM
     Indication: Migraine
     Dates: start: 20240620, end: 20240620
  2. RIZATRIPTAN [Concomitant]
     Active Substance: RIZATRIPTAN
  3. DAILY MULTIVITAMIN [Concomitant]
  4. vitamin d supplements [Concomitant]

REACTIONS (13)
  - Middle insomnia [None]
  - Nausea [None]
  - Dizziness [None]
  - Restlessness [None]
  - Feeling hot [None]
  - Hot flush [None]
  - Loss of consciousness [None]
  - Seizure [None]
  - Tremor [None]
  - Loss of consciousness [None]
  - Syncope [None]
  - Lethargy [None]
  - Product communication issue [None]

NARRATIVE: CASE EVENT DATE: 20240620
